FAERS Safety Report 7201548-7 (Version None)
Quarter: 2010Q4

REPORT INFORMATION
  Report Type: 
  Country: None (occurrence: None)
  Receive Date: 20101229
  Receipt Date: 20101220
  Transmission Date: 20110411
  Serious: Yes (Hospitalization)
  Sender: FDA-Public Use
  Company Number: FR-PFIZER INC-FR-WYE-H17992110

PATIENT
  Age: 75 Year
  Sex: Male

DRUGS (12)
  1. INIPOMP [Suspect]
     Dosage: 40 MG, 1X/DAY
     Route: 048
     Dates: end: 20100818
  2. TEGRETOL [Suspect]
     Dosage: 600 MG, 2X/DAY
     Route: 048
     Dates: end: 20101011
  3. TEGRETOL [Suspect]
     Dosage: 1.5 DF, 2X/DAY
     Route: 048
     Dates: start: 20100819
  4. TEGRETOL [Suspect]
     Dosage: UNK
  5. TAHOR [Concomitant]
     Dosage: 10 MG, UNK
     Route: 048
  6. TRIATEC [Concomitant]
     Dosage: 10 MG, 1X/DAY
     Route: 048
  7. PERMIXON [Concomitant]
     Dosage: 160 MG, 320 MG, UNK
     Route: 048
     Dates: end: 20100818
  8. BISOPROLOL FUMARATE [Concomitant]
     Dosage: 10 MG, 5 MG, UNK
     Route: 048
  9. VASTAREL [Concomitant]
     Dosage: 20 MG, 60 MG, UNK
     Route: 048
  10. BRONCHODUAL [Concomitant]
     Dosage: 3 DF, 1X/DAY
     Route: 055
  11. BECOTIDE [Concomitant]
     Dosage: 4 DF, 1X/DAY
     Route: 055
  12. KARDEGIC [Concomitant]
     Dosage: 75 MG, 1X/DAY
     Route: 048

REACTIONS (7)
  - CONFUSIONAL STATE [None]
  - DIZZINESS [None]
  - GENERAL PHYSICAL HEALTH DETERIORATION [None]
  - HYPONATRAEMIA [None]
  - MUSCULAR WEAKNESS [None]
  - OEDEMA PERIPHERAL [None]
  - SOMNOLENCE [None]
